FAERS Safety Report 22261022 (Version 3)
Quarter: 2023Q4

REPORT INFORMATION
  Report Type: Spontaneous
  Country: CZ (occurrence: CZ)
  Receive Date: 20230427
  Receipt Date: 20231027
  Transmission Date: 20240110
  Serious: Yes (Other)
  Sender: FDA-Public Use
  Company Number: CZ-MYLANLABS-2023M1037734

PATIENT
  Age: 71 Year
  Sex: Male

DRUGS (8)
  1. PACLITAXEL [Suspect]
     Active Substance: PACLITAXEL
     Indication: Squamous cell carcinoma of lung
     Dosage: UNK, CYCLIC (2 CYCLES)
     Route: 065
     Dates: start: 20220302, end: 20220413
  2. PACLITAXEL [Suspect]
     Active Substance: PACLITAXEL
     Indication: Non-small cell lung cancer
     Dosage: UNK
     Route: 065
     Dates: start: 2022, end: 2022
  3. CARBOPLATIN [Concomitant]
     Active Substance: CARBOPLATIN
     Indication: Squamous cell carcinoma of lung
     Dosage: UNK, CYCLIC (2 CYCLES)
     Route: 065
     Dates: start: 20220302
  4. CARBOPLATIN [Concomitant]
     Active Substance: CARBOPLATIN
     Indication: Non-small cell lung cancer
     Dosage: UNK
     Route: 065
     Dates: start: 2022, end: 2022
  5. IPILIMUMAB [Concomitant]
     Active Substance: IPILIMUMAB
     Indication: Squamous cell carcinoma of lung
     Dosage: UNK, CYCLIC (2 CYCLES)
     Route: 065
     Dates: start: 20220302
  6. IPILIMUMAB [Concomitant]
     Active Substance: IPILIMUMAB
     Indication: Non-small cell lung cancer
     Dosage: UNK, CYCLIC (2 CYCLES)
     Route: 065
     Dates: start: 2022, end: 2022
  7. NIVOLUMAB [Concomitant]
     Active Substance: NIVOLUMAB
     Indication: Squamous cell carcinoma of lung
     Dosage: UNK, CYCLIC (2 CYCLES)
     Route: 065
     Dates: start: 20220302
  8. NIVOLUMAB [Concomitant]
     Active Substance: NIVOLUMAB
     Indication: Non-small cell lung cancer
     Dosage: UNK, CYCLIC (2 CYCLES)
     Route: 065
     Dates: start: 2022, end: 2022

REACTIONS (4)
  - Dermatitis allergic [Recovered/Resolved]
  - Lichen planus [Recovered/Resolved]
  - Weight increased [Unknown]
  - Autoimmune dermatitis [Unknown]

NARRATIVE: CASE EVENT DATE: 20220101
